FAERS Safety Report 4348935-2 (Version None)
Quarter: 2004Q2

REPORT INFORMATION
  Report Type: 
  Country: None (occurrence: None)
  Receive Date: 20040423
  Receipt Date: 20040420
  Transmission Date: 20050107
  Serious: Yes (Hospitalization)
  Sender: FDA-Public Use
  Company Number: TPG2004A00037

PATIENT
  Age: 68 Year
  Sex: Male

DRUGS (2)
  1. TRENANTONE           (LEUPROLIDE ACETATE) [Suspect]
     Indication: PROSTATE CANCER
     Dosage: 11.25 MG (11.25 MG, 1 IN 3 M) SUBCUTANEOUS
     Route: 058
     Dates: end: 20040130
  2. CYPROTERONE ACETATE (CYPROTERONE ACETATE) [Concomitant]

REACTIONS (21)
  - BUNDLE BRANCH BLOCK [None]
  - DIABETES MELLITUS INADEQUATE CONTROL [None]
  - DILATATION ATRIAL [None]
  - EJECTION FRACTION DECREASED [None]
  - FACE OEDEMA [None]
  - FEELING ABNORMAL [None]
  - GENERALISED OEDEMA [None]
  - INJECTION SITE SWELLING [None]
  - LEUKOCYTOSIS [None]
  - LOCALISED OEDEMA [None]
  - LYMPH NODE PAIN [None]
  - LYMPHOPENIA [None]
  - MITRAL VALVE INCOMPETENCE [None]
  - MUCOSAL INFLAMMATION [None]
  - MUCOSAL ULCERATION [None]
  - MUCOUS MEMBRANE DISORDER [None]
  - PYREXIA [None]
  - SKIN DISORDER [None]
  - SYSTEMIC LUPUS ERYTHEMATOSUS [None]
  - SYSTEMIC LUPUS ERYTHEMATOSUS RASH [None]
  - TESTICULAR PAIN [None]
